FAERS Safety Report 17886141 (Version 1)
Quarter: 2020Q2

REPORT INFORMATION
  Report Type: Spontaneous
  Country: US (occurrence: US)
  Receive Date: 20200611
  Receipt Date: 20200611
  Transmission Date: 20200714
  Serious: Yes (Other)
  Sender: FDA-Public Use
  Company Number: US-ROCHE-2615962

PATIENT
  Sex: Female
  Weight: 81.72 kg

DRUGS (7)
  1. HERCEPTIN [Suspect]
     Active Substance: TRASTUZUMAB
     Indication: HER2 POSITIVE BREAST CANCER
     Dosage: 30 MINUTE INTRAVENOUS INFUSION ONCE EVERY 3 WEEKS ;ONGOING: YES
     Route: 041
     Dates: start: 20170101
  2. PERJETA [Suspect]
     Active Substance: PERTUZUMAB
     Indication: HER2 POSITIVE BREAST CANCER
     Dosage: DATE OF LAST DOSE ON /OCT/2019, 30 MINUTE INTRAVENOUS INFUSION ONCE EVERY 3 WEEKS ;ONGOING: NO,
     Route: 041
     Dates: start: 20170101
  3. KANJINTI [Concomitant]
     Active Substance: TRASTUZUMAB-ANNS
     Indication: HER2 POSITIVE BREAST CANCER
     Route: 041
     Dates: start: 201910, end: 201912
  4. NEULASTA [Concomitant]
     Active Substance: PEGFILGRASTIM
     Route: 065
     Dates: start: 201701, end: 201705
  5. VITAMIN E NOS [Concomitant]
     Active Substance: .ALPHA.-TOCOPHEROL
     Route: 061
     Dates: start: 202001
  6. TAXOTERE [Concomitant]
     Active Substance: DOCETAXEL
     Indication: HER2 POSITIVE BREAST CANCER
     Route: 041
     Dates: start: 201701, end: 201707
  7. PREDNISONE. [Concomitant]
     Active Substance: PREDNISONE
     Route: 048

REACTIONS (5)
  - Pneumonia [Recovered/Resolved]
  - Alopecia [Unknown]
  - Photosensitivity reaction [Not Recovered/Not Resolved]
  - Stomatitis [Recovered/Resolved]
  - Influenza like illness [Recovered/Resolved]

NARRATIVE: CASE EVENT DATE: 201707
